FAERS Safety Report 7052630-9 (Version None)
Quarter: 2010Q4

REPORT INFORMATION
  Report Type: 
  Country: None (occurrence: None)
  Receive Date: 20101019
  Receipt Date: 20101012
  Transmission Date: 20110411
  Serious: Yes (Life-Threatening, Hospitalization)
  Sender: FDA-Public Use
  Company Number: FI-B.I. PHARMACEUTICALS,INC./RIDGEFIELD-2010-SW-00309SF

PATIENT
  Sex: Female

DRUGS (5)
  1. MICARDISPLUS TAB [Suspect]
     Indication: HYPERTENSION
     Dosage: 1 ANZ
     Route: 048
     Dates: end: 20100822
  2. SALAZOPYRIN [Suspect]
     Indication: PALINDROMIC RHEUMATISM
     Dosage: 2000 MG
     Dates: start: 20100712, end: 20100822
  3. KEPPRA [Suspect]
     Indication: EPILEPSY
     Dosage: 1000 MG
     Dates: start: 20100701, end: 20100822
  4. OMEPRAZOLE [Suspect]
     Indication: PROPHYLAXIS
     Dosage: 40 MG
  5. PREDNISOLON [Concomitant]
     Dosage: 5 MG

REACTIONS (2)
  - AGRANULOCYTOSIS [None]
  - URINARY TRACT INFECTION [None]
